FAERS Safety Report 15031997 (Version 1)
Quarter: 2018Q2

REPORT INFORMATION
  Report Type: Spontaneous
  Country: US (occurrence: US)
  Receive Date: 20180619
  Receipt Date: 20180619
  Transmission Date: 20180711
  Serious: Yes (Life-Threatening, Hospitalization, Other)
  Sender: FDA-Public Use
  Company Number: US-MYLANLABS-2018M1042163

PATIENT
  Age: 45 Year
  Sex: Female

DRUGS (3)
  1. COBICISTAT W/ELVITEGRAVIR/EMTRICITA/09126601/ [Concomitant]
     Active Substance: COBICISTAT\ELVITEGRAVIR\EMTRICITABINE\TENOFOVIR
     Indication: HIV INFECTION
     Route: 065
  2. PREDNISONE. [Suspect]
     Active Substance: PREDNISONE
     Indication: EVIDENCE BASED TREATMENT
     Dosage: 40 MG, HAD RECEIVED TWO DOSES OF 10MG BEFORE BAL EXAMINATION
     Route: 065
  3. PREDNISONE. [Suspect]
     Active Substance: PREDNISONE
     Dosage: HAD RECEIVED TWO DOSES OF PREDNISONE 10MG BEFORE BRONCHOALVEOLAR LAVAGE (BAL) EXAMINATION
     Route: 065

REACTIONS (5)
  - Respiratory failure [Unknown]
  - Haemorrhage [Unknown]
  - Acute respiratory distress syndrome [Unknown]
  - Strongyloidiasis [Not Recovered/Not Resolved]
  - Respiratory disorder [Unknown]
